FAERS Safety Report 7990560-6 (Version None)
Quarter: 2011Q4

REPORT INFORMATION
  Report Type: 
  Country: None (occurrence: None)
  Receive Date: 20111219
  Receipt Date: 20111006
  Transmission Date: 20120403
  Serious: No
  Sender: FDA-Public Use
  Company Number: US-ASTRAZENECA-2011SE60538

PATIENT
  Age: 55 Year
  Sex: Female
  Weight: 77.1 kg

DRUGS (6)
  1. LISINOPRIL [Concomitant]
  2. METFORMIN HCL [Concomitant]
  3. BYETTA [Concomitant]
  4. CRESTOR [Suspect]
     Indication: BLOOD CHOLESTEROL ABNORMAL
     Route: 048
     Dates: start: 20080101
  5. SIMVASTATIN [Concomitant]
  6. VITAMIN D [Concomitant]
     Dosage: 5000 U EVERY 8 DAYS

REACTIONS (3)
  - HYPERTENSION [None]
  - DIABETES MELLITUS [None]
  - DRUG DOSE OMISSION [None]
